FAERS Safety Report 23165814 (Version 1)
Quarter: 2023Q4

REPORT INFORMATION
  Report Type: Spontaneous
  Country: US (occurrence: None)
  Receive Date: 20231108
  Receipt Date: 20231108
  Transmission Date: 20240110
  Serious: No
  Sender: FDA-Public Use
  Company Number: None

PATIENT
  Age: 51 Year
  Sex: Male

DRUGS (6)
  1. COGENTIN [Suspect]
     Active Substance: BENZTROPINE MESYLATE
  2. DEPAKOTE [Suspect]
     Active Substance: DIVALPROEX SODIUM
  3. GABAPENTIN [Suspect]
     Active Substance: GABAPENTIN
  4. REMERON [Suspect]
     Active Substance: MIRTAZAPINE
  5. WELLBUTRIN [Suspect]
     Active Substance: BUPROPION HYDROCHLORIDE
  6. ZYPREXA [Suspect]
     Active Substance: OLANZAPINE

REACTIONS (1)
  - Death [None]

NARRATIVE: CASE EVENT DATE: 20230915
